FAERS Safety Report 7163781-2 (Version None)
Quarter: 2010Q4

REPORT INFORMATION
  Report Type: 
  Country: None (occurrence: None)
  Receive Date: 20101215
  Receipt Date: 20100611
  Transmission Date: 20110411
  Serious: Yes (Other)
  Sender: FDA-Public Use
  Company Number: US-PFIZER INC-2010050370

PATIENT
  Sex: Female
  Weight: 66.68 kg

DRUGS (7)
  1. LYRICA [Suspect]
     Indication: FIBROMYALGIA
     Dosage: 50 MG, 2X/DAY
     Route: 048
     Dates: start: 20090101, end: 20090101
  2. ALISKIREN [Concomitant]
     Dosage: UNK
  3. PREMARIN [Concomitant]
     Dosage: UNK
  4. INDERAL [Concomitant]
     Dosage: UNK
  5. ZOCOR [Concomitant]
     Dosage: UNK
  6. MILNACIPRAN [Concomitant]
     Dosage: UNK
  7. SYNTHROID [Concomitant]
     Dosage: UNK

REACTIONS (2)
  - OEDEMA PERIPHERAL [None]
  - POOR PERIPHERAL CIRCULATION [None]
